FAERS Safety Report 10218586 (Version 1)
Quarter: 2014Q2

REPORT INFORMATION
  Report Type: Spontaneous
  Country: US (occurrence: US)
  Receive Date: 20140605
  Receipt Date: 20140605
  Transmission Date: 20141212
  Serious: No
  Sender: FDA-Public Use
  Company Number: US-PFIZER INC-2014150254

PATIENT
  Age: 42 Year
  Sex: Female

DRUGS (3)
  1. LYRICA [Suspect]
     Indication: PAIN IN EXTREMITY
     Dosage: 100 MG, DAILY (25 MGS AM, 25 MGS PM + 50 MGS AT BED TIME)
  2. LYRICA [Suspect]
     Indication: MUSCULAR WEAKNESS
  3. CIMZIA [Concomitant]
     Indication: CROHN^S DISEASE
     Dosage: UNK

REACTIONS (3)
  - Gait disturbance [Unknown]
  - Therapeutic response changed [Unknown]
  - Drug ineffective [Unknown]
